FAERS Safety Report 7934457 (Version 3)
Quarter: 2015Q3

REPORT INFORMATION
  Report Type: Spontaneous
  Country: US (occurrence: US)
  Receive Date: 20110506
  Receipt Date: 20150908
  Transmission Date: 20151125
  Serious: Yes (Other)
  Sender: FDA-Public Use
  Company Number: US-ASTRAZENECA-2011SE24653

PATIENT
  Age: 59 Year
  Sex: Female
  Weight: 89.8 kg

DRUGS (2)
  1. NEXIUM [Suspect]
     Active Substance: ESOMEPRAZOLE MAGNESIUM
     Route: 048
  2. PRILOSEC [Suspect]
     Active Substance: OMEPRAZOLE MAGNESIUM
     Indication: GASTROOESOPHAGEAL REFLUX DISEASE
     Route: 048
     Dates: start: 19890101

REACTIONS (6)
  - Hypertension [Unknown]
  - Diabetes mellitus [Unknown]
  - Fall [Unknown]
  - Cerebrovascular accident [Unknown]
  - Hypercholesterolaemia [Unknown]
  - Drug ineffective [Unknown]
